FAERS Safety Report 5896935-3 (Version None)
Quarter: 2008Q3

REPORT INFORMATION
  Report Type: 
  Country: None (occurrence: None)
  Receive Date: 20080924
  Receipt Date: 20080529
  Transmission Date: 20090109
  Serious: Yes (Other)
  Sender: FDA-Public Use
  Company Number: US-ASTRAZENECA-2008UW07157

PATIENT
  Age: 8638 Day
  Sex: Female
  Weight: 95.7 kg

DRUGS (9)
  1. SEROQUEL [Suspect]
     Indication: BIPOLAR DISORDER
     Route: 048
     Dates: start: 20080228, end: 20080402
  2. SEROQUEL [Suspect]
     Indication: DEPRESSION
     Route: 048
     Dates: start: 20080228, end: 20080402
  3. METFORMIN HCL [Concomitant]
  4. NOVOLOG [Concomitant]
     Dosage: 20 UNITS IN AM AND 22 UNITS MIDDAY
  5. LANTUS [Concomitant]
  6. RELPAX [Concomitant]
  7. METAMUCIL [Concomitant]
     Dates: start: 20080301
  8. COLACE [Concomitant]
  9. MIRALAX [Concomitant]

REACTIONS (4)
  - BLOOD GLUCOSE INCREASED [None]
  - HYPERGLYCAEMIA [None]
  - KETOACIDOSIS [None]
  - TYPE 1 DIABETES MELLITUS [None]
